FAERS Safety Report 4867960-6 (Version None)
Quarter: 2005Q4

REPORT INFORMATION
  Report Type: 
  Country: None (occurrence: None)
  Receive Date: 20051227
  Receipt Date: 20051206
  Transmission Date: 20060501
  Serious: Yes (Congenital Anomaly)
  Sender: FDA-Public Use
  Company Number: GB-JNJFOC-20050906051

PATIENT
  Sex: Male

DRUGS (4)
  1. TOPAMAX [Suspect]
     Dosage: 400 MG, 2 IN 1 DAY, TRANSPLACENTAL
     Route: 064
     Dates: start: 19961001
  2. VIGABATRINE (VIGABATRIN) [Suspect]
     Dosage: TRANSPLACENTAL
     Route: 064
  3. LAMOTRIGINE [Suspect]
     Dosage: TRANSPLACENTAL
     Route: 064
  4. CLOBAZAM (CLOBAZAM) [Suspect]
     Dosage: TRANSPLACENTAL
     Route: 064

REACTIONS (5)
  - BODY DYSMORPHIC DISORDER [None]
  - CARDIAC MURMUR [None]
  - CONGENITAL HYDRONEPHROSIS [None]
  - DRUG EXPOSURE DURING PREGNANCY [None]
  - HIP DYSPLASIA [None]
